FAERS Safety Report 24300973 (Version 1)
Quarter: 2024Q3

REPORT INFORMATION
  Report Type: Report from Study
  Country: CO (occurrence: CO)
  Receive Date: 20240910
  Receipt Date: 20240910
  Transmission Date: 20241017
  Serious: Yes (Other)
  Sender: REGENERON
  Company Number: CO-BAYER-2024A126791

PATIENT
  Sex: Female

DRUGS (6)
  1. EYLEA [Suspect]
     Active Substance: AFLIBERCEPT
     Indication: Diabetic retinal oedema
     Dosage: 2 MG, ONCE, LEFT EYE, SOLUTION FOR INJECTION, 40 MG/ML
     Route: 031
     Dates: start: 20240221, end: 20240221
  2. EYLEA [Suspect]
     Active Substance: AFLIBERCEPT
     Dosage: 2 MG, ONCE, LEFT EYE, SOLUTION FOR INJECTION, 40 MG/ML
     Route: 031
     Dates: start: 20240321, end: 20240321
  3. EYLEA [Suspect]
     Active Substance: AFLIBERCEPT
     Dosage: 2 MG, ONCE, LEFT EYE, SOLUTION FOR INJECTION, 40 MG/ML
     Route: 031
     Dates: start: 20240421, end: 20240421
  4. EYLEA [Suspect]
     Active Substance: AFLIBERCEPT
     Dosage: 2 MG, ONCE, LEFT EYE, SOLUTION FOR INJECTION, 40 MG/ML
     Route: 031
     Dates: start: 20240521, end: 20240521
  5. EYLEA [Suspect]
     Active Substance: AFLIBERCEPT
     Dosage: 2 MG, ONCE, LEFT EYE, SOLUTION FOR INJECTION, 40 MG/ML
     Route: 031
     Dates: start: 20240621, end: 20240621
  6. EYLEA [Suspect]
     Active Substance: AFLIBERCEPT
     Dosage: 2 MG, LEFT EYE, SOLUTION FOR INJECTION, 40 MG/ML
     Route: 031
     Dates: start: 202408

REACTIONS (4)
  - Cataract operation [Recovered/Resolved with Sequelae]
  - Eye haemorrhage [Recovered/Resolved]
  - Eye irrigation [Recovered/Resolved]
  - Inappropriate schedule of product administration [Not Recovered/Not Resolved]

NARRATIVE: CASE EVENT DATE: 20240621
